FAERS Safety Report 21193309 (Version 11)
Quarter: 2023Q4

REPORT INFORMATION
  Report Type: Report from Study
  Country: PT (occurrence: PT)
  Receive Date: 20220810
  Receipt Date: 20231107
  Transmission Date: 20240109
  Serious: Yes (Other)
  Sender: FDA-Public Use
  Company Number: PT-ABBVIE-22K-130-4424111-00

PATIENT
  Age: 65 Year
  Sex: Male

DRUGS (26)
  1. CARBIDOPA\LEVODOPA [Suspect]
     Active Substance: CARBIDOPA\LEVODOPA
     Indication: Parkinson^s disease
     Dosage: 20 MG + 5 MG
     Route: 050
     Dates: start: 20220605, end: 20220623
  2. CARBIDOPA\LEVODOPA [Suspect]
     Active Substance: CARBIDOPA\LEVODOPA
     Dosage: 20 MG + 5 MG
     Route: 050
     Dates: start: 20221103, end: 20221103
  3. CARBIDOPA\LEVODOPA [Suspect]
     Active Substance: CARBIDOPA\LEVODOPA
     Route: 050
  4. CARBIDOPA\LEVODOPA [Suspect]
     Active Substance: CARBIDOPA\LEVODOPA
     Dosage: 20 MG + 5 MG, LOT NUMBER:22A24G67, FIRST ADMIN DATE: 2022
     Route: 050
     Dates: end: 20220605
  5. CARBIDOPA\LEVODOPA [Suspect]
     Active Substance: CARBIDOPA\LEVODOPA
     Dosage: 20 MG + 5 MG?FREQUENCY TEXT: MOR:10.2CC;MAIN:4.5-5.5CC/H;EXT:3CC
     Route: 050
     Dates: start: 20221103
  6. CARBIDOPA\LEVODOPA [Suspect]
     Active Substance: CARBIDOPA\LEVODOPA
     Dosage: 20 MG + 5 MG
     Route: 050
     Dates: start: 20220706, end: 20220729
  7. CARBIDOPA\LEVODOPA [Suspect]
     Active Substance: CARBIDOPA\LEVODOPA
     Dosage: 20 MG + 5 MG
     Route: 050
     Dates: start: 20220706, end: 20220729
  8. CARBIDOPA\LEVODOPA [Suspect]
     Active Substance: CARBIDOPA\LEVODOPA
     Route: 050
  9. CARBIDOPA\LEVODOPA [Suspect]
     Active Substance: CARBIDOPA\LEVODOPA
     Dosage: 20 MG + 5 MG?MORN:7ML;MAINT:3.2ML/H;EXTRA:1ML, ?LAST ADMINISTRATION DATE IN 2022
     Route: 050
     Dates: start: 20220511
  10. CARBIDOPA\LEVODOPA [Suspect]
     Active Substance: CARBIDOPA\LEVODOPA
     Dosage: 20 MG + 5 MG?FREQUENCY TEXT: MORN:10.2ML;MAINT:4.3-4.5ML/H;EXTRA:2ML
     Route: 050
     Dates: start: 20220812, end: 20220813
  11. CARBIDOPA\LEVODOPA [Suspect]
     Active Substance: CARBIDOPA\LEVODOPA
     Dosage: 20 MG + 5 MG?MORN:10.2ML;MAINT:4.5ML/H;EXTRA:3ML
     Route: 050
     Dates: start: 20220605, end: 20220623
  12. CARBIDOPA\LEVODOPA [Suspect]
     Active Substance: CARBIDOPA\LEVODOPA
     Dosage: 20 MG + 5 MG?MORN:10.2ML;MAINT:4.7ML/H;EXTRA:3ML(LL0)?MORN:10.2ML;MAINT:5.0ML/H;EXTRA:3ML
     Route: 050
     Dates: start: 20220623, end: 20220706
  13. CARBIDOPA\LEVODOPA [Suspect]
     Active Substance: CARBIDOPA\LEVODOPA
     Dosage: 20 MG + 5 MG?MORN:10.2ML;MAINT:4.8ML/H;EXTRA:3ML
     Route: 050
     Dates: start: 20220729, end: 20220804
  14. CARBIDOPA\LEVODOPA [Suspect]
     Active Substance: CARBIDOPA\LEVODOPA
     Dosage: 20 MG + 5 MG?MORN:10.2ML;MAINT:4.3-4.5ML/H;EXTRA:2ML
     Route: 050
     Dates: start: 20220804, end: 20220812
  15. CARBIDOPA\LEVODOPA [Suspect]
     Active Substance: CARBIDOPA\LEVODOPA
     Dosage: 20 MG + 5 MG?FREQUENCY TEXT: MOR:10.2CC;MAIN:4.5-5CC/H;EXT:3CC
     Route: 050
     Dates: start: 20220928, end: 20221103
  16. CARBIDOPA\LEVODOPA [Suspect]
     Active Substance: CARBIDOPA\LEVODOPA
     Dosage: 20 MG + 5 MG, FIRST ADMINISTRATION DATE IN 2022
     Route: 050
     Dates: end: 20220605
  17. CARBIDOPA\LEVODOPA [Suspect]
     Active Substance: CARBIDOPA\LEVODOPA
     Dosage: 20 MG + 5 MG?MORN:10.2ML;MAINT:4.3-4.5ML/H;EXTRA:2ML
     Route: 050
     Dates: start: 20220813, end: 20220928
  18. CARBIDOPA\LEVODOPA [Suspect]
     Active Substance: CARBIDOPA\LEVODOPA
     Dosage: 20 MG + 5 MG, FIRST ADMIN DATE: 2022
     Route: 050
     Dates: end: 20220605
  19. CARBIDOPA\LEVODOPA [Suspect]
     Active Substance: CARBIDOPA\LEVODOPA
     Route: 050
  20. MIRTAZAPINE [Concomitant]
     Active Substance: MIRTAZAPINE
     Indication: Product used for unknown indication
     Dosage: STRENGTH: 30 MILLIGRAM
     Dates: start: 2023
  21. AMANTADINE HYDROCHLORIDE [Concomitant]
     Active Substance: AMANTADINE HYDROCHLORIDE
     Indication: Product used for unknown indication
     Dosage: 1 TABLET?STRENGTH: 100 MILLIGRAM
     Dates: start: 2023
  22. RIVOTRIL [Concomitant]
     Active Substance: CLONAZEPAM
     Indication: Product used for unknown indication
     Dosage: STARTED BEFORE DUODOPA?FORM STRENGTH: 0.5 MILLIGRAM
     Route: 065
  23. XADAGO [Suspect]
     Active Substance: SAFINAMIDE MESYLATE
     Indication: Gait disturbance
     Route: 065
     Dates: start: 202308, end: 202309
  24. BENSERAZIDE HYDROCHLORIDE\LEVODOPA [Concomitant]
     Active Substance: BENSERAZIDE HYDROCHLORIDE\LEVODOPA
     Indication: Product used for unknown indication
     Dosage: BEFORE DUODOPA?2 TABLET?FREQUENCY TEXT: AT BEDTIME
     Route: 065
  25. CLONAZEPAM [Concomitant]
     Active Substance: CLONAZEPAM
     Indication: Product used for unknown indication
     Dosage: 1 TABLET?STRENGTH: 0.5 MILLIGRAM
  26. CYANOCOBALAMIN\FOLIC ACID [Concomitant]
     Active Substance: CYANOCOBALAMIN\FOLIC ACID
     Indication: Product used for unknown indication
     Dosage: 1 TABLET

REACTIONS (8)
  - Weight decreased [Recovered/Resolved]
  - Decreased interest [Recovered/Resolved]
  - Device dislocation [Unknown]
  - Gait disturbance [Recovering/Resolving]
  - Decreased appetite [Recovered/Resolved]
  - Depressed mood [Recovered/Resolved]
  - Freezing phenomenon [Recovering/Resolving]
  - Agitation [Recovered/Resolved]

NARRATIVE: CASE EVENT DATE: 20220101
